FAERS Safety Report 15383434 (Version 14)
Quarter: 2019Q4

REPORT INFORMATION
  Report Type: Report from Study
  Country: DE (occurrence: DE)
  Receive Date: 20180913
  Receipt Date: 20191030
  Transmission Date: 20200122
  Serious: Yes (Hospitalization)
  Sender: FDA-Public Use
  Company Number: DE-SHIRE-DE201834556

PATIENT

DRUGS (21)
  1. NATPARA (PARATHYROID HORMONE) [Suspect]
     Active Substance: PARATHYROID HORMONE
     Dosage: 75 MICROGRAM OR 100 MICROGRAM, 1X/DAY:QD, EVERY ALTERNATING DAYS
     Route: 058
     Dates: start: 20180823
  2. NATPARA (PARATHYROID HORMONE) [Suspect]
     Active Substance: PARATHYROID HORMONE
     Dosage: 100 MICROGRAM, 1X/DAY:QD
     Route: 058
     Dates: start: 20191008
  3. CALCIUM [Concomitant]
     Active Substance: CALCIUM
     Indication: HYPOPARATHYROIDISM
  4. MEDYN [Concomitant]
     Indication: OBSESSIVE-COMPULSIVE DISORDER
  5. ALLOPURINOL. [Concomitant]
     Active Substance: ALLOPURINOL
     Indication: PRODUCT USED FOR UNKNOWN INDICATION
  6. NATPARA (PARATHYROID HORMONE) [Suspect]
     Active Substance: PARATHYROID HORMONE
     Dosage: 75 ?G, 1X/DAY:QD
     Route: 058
     Dates: start: 20181129
  7. DECRISTOL [Concomitant]
     Indication: HYPOPARATHYROIDISM
  8. ORTOTON [Concomitant]
     Indication: MUSCLE RELAXANT THERAPY
  9. FRUBIASE CALCIUM FORTE [Concomitant]
     Indication: HYPOPARATHYROIDISM
  10. NATPARA (PARATHYROID HORMONE) [Suspect]
     Active Substance: PARATHYROID HORMONE
     Indication: HYPOPARATHYROIDISM
     Dosage: 50 ?G, 1X/DAY:QD
     Route: 058
     Dates: start: 20180823
  11. MAGNESIUM [Concomitant]
     Active Substance: MAGNESIUM
     Indication: MUSCLE SPASMS
  12. NATPARA (PARATHYROID HORMONE) [Suspect]
     Active Substance: PARATHYROID HORMONE
     Dosage: 50 ?G, 1X/DAY:QD
     Route: 058
     Dates: start: 20180823
  13. NATPARA (PARATHYROID HORMONE) [Suspect]
     Active Substance: PARATHYROID HORMONE
     Dosage: 75 MICROGRAM OR 100 MICROGRAM, 1X/DAY:QD, EVERY ALTERNATING DAYS
     Route: 058
     Dates: start: 20190408
  14. L-THYROXIN [Concomitant]
     Active Substance: LEVOTHYROXINE SODIUM
     Indication: THYROID OPERATION
  15. BISOPROLOL [Concomitant]
     Active Substance: BISOPROLOL
     Indication: HYPERTONIA
  16. MEDYN [Concomitant]
     Indication: VITAMIN B12 DEFICIENCY
  17. LORAZEPAM. [Concomitant]
     Active Substance: LORAZEPAM
     Indication: INSOMNIA
     Route: 048
  18. NATPARA (PARATHYROID HORMONE) [Suspect]
     Active Substance: PARATHYROID HORMONE
     Dosage: 100 MICROGRAM, 1X/DAY:QD
     Route: 058
     Dates: start: 20190423
  19. DECOSTRIOL [Concomitant]
     Active Substance: CALCITRIOL
     Indication: HYPOPARATHYROIDISM
  20. ROCALTROL [Concomitant]
     Active Substance: CALCITRIOL
     Indication: HYPOPARATHYROIDISM
  21. ORTOTON [Concomitant]
     Indication: PAIN

REACTIONS (22)
  - Urine output increased [Not Recovered/Not Resolved]
  - Hypocalcaemia [Recovered/Resolved]
  - Headache [Not Recovered/Not Resolved]
  - Bone pain [Not Recovered/Not Resolved]
  - Injection site erythema [Unknown]
  - Injection site reaction [Recovered/Resolved]
  - Abdominal pain upper [Unknown]
  - Musculoskeletal stiffness [Not Recovered/Not Resolved]
  - Thirst [Not Recovered/Not Resolved]
  - Nausea [Recovered/Resolved]
  - Hypercalcaemia [Recovered/Resolved]
  - Injection site pain [Unknown]
  - Pruritus [Recovering/Resolving]
  - Insomnia [Recovering/Resolving]
  - Off label use [Not Recovered/Not Resolved]
  - Renal pain [Recovered/Resolved]
  - Inappropriate schedule of product administration [Recovered/Resolved]
  - Gastritis [Recovered/Resolved]
  - Hyperhidrosis [Recovered/Resolved]
  - Rash [Recovering/Resolving]
  - Incorrect dose administered [Unknown]
  - Joint stiffness [Not Recovered/Not Resolved]

NARRATIVE: CASE EVENT DATE: 20180823
